FAERS Safety Report 11346810 (Version 1)
Quarter: 2015Q3

REPORT INFORMATION
  Report Type: Spontaneous
  Country: US (occurrence: US)
  Receive Date: 20150803
  Receipt Date: 20150803
  Transmission Date: 20151125
  Serious: No
  Sender: FDA-Public Use
  Company Number: US-ELI_LILLY_AND_COMPANY-US201012000982

PATIENT
  Age: 19 Year
  Sex: Female

DRUGS (6)
  1. KLONOPIN [Concomitant]
     Active Substance: CLONAZEPAM
     Indication: HALLUCINATION
     Dosage: 0.5 MG, UNK
  2. ZYPREXA [Suspect]
     Active Substance: OLANZAPINE
     Indication: HALLUCINATION
  3. ZYPREXA [Suspect]
     Active Substance: OLANZAPINE
     Dosage: 5 MG, UNK
  4. ZYPREXA [Suspect]
     Active Substance: OLANZAPINE
     Dosage: 7.5 MG, UNK
  5. ZYPREXA [Suspect]
     Active Substance: OLANZAPINE
     Dosage: 10 MG, UNK
  6. ZYPREXA [Suspect]
     Active Substance: OLANZAPINE
     Dosage: 7.5 MG, UNK

REACTIONS (3)
  - Weight increased [Unknown]
  - Tremor [Recovered/Resolved]
  - Paraesthesia oral [Recovered/Resolved]

NARRATIVE: CASE EVENT DATE: 201011
